FAERS Safety Report 4820180-3 (Version None)
Quarter: 2005Q4

REPORT INFORMATION
  Report Type: 
  Country: None (occurrence: None)
  Receive Date: 20051012
  Receipt Date: 20050624
  Transmission Date: 20060501
  Serious: No
  Sender: FDA-Public Use
  Company Number: A03200501925

PATIENT
  Age: 71 Year
  Sex: Male
  Weight: 79.3795 kg

DRUGS (3)
  1. UROXATRAL [Suspect]
     Indication: PROSTATE EXAMINATION ABNORMAL
     Dosage: 10 MG OD - ORAL
     Route: 048
     Dates: start: 20050601, end: 20050625
  2. DOXAZOSIN MESYLATE [Concomitant]
  3. POTASSIUM AMINOBENZOATE [Concomitant]

REACTIONS (7)
  - COLD SWEAT [None]
  - DIZZINESS [None]
  - DYSPEPSIA [None]
  - DYSPHAGIA [None]
  - FEELING ABNORMAL [None]
  - NAUSEA [None]
  - RETCHING [None]
